FAERS Safety Report 4786235-7 (Version None)
Quarter: 2005Q3

REPORT INFORMATION
  Report Type: 
  Country: None (occurrence: None)
  Receive Date: 20050926
  Receipt Date: 20041027
  Transmission Date: 20060218
  Serious: Yes (Hospitalization)
  Sender: FDA-Public Use
  Company Number: 2004081001

PATIENT
  Sex: Male
  Weight: 117.028 kg

DRUGS (1)
  1. NARDIL [Suspect]
     Indication: MAJOR DEPRESSION
     Dosage: 60 MG (15 MG, 3 IN 1), ORAL
     Route: 048
     Dates: end: 20030101

REACTIONS (1)
  - DRUG INEFFECTIVE [None]
